FAERS Safety Report 16395666 (Version 1)
Quarter: 2019Q2

REPORT INFORMATION
  Report Type: Spontaneous
  Country: GR (occurrence: GR)
  Receive Date: 20190605
  Receipt Date: 20190605
  Transmission Date: 20190711
  Serious: Yes (Other)
  Sender: FDA-Public Use
  Company Number: PHHY2019GR126241

PATIENT
  Age: 66 Year
  Sex: Male

DRUGS (3)
  1. ATORVASTATIN [Suspect]
     Active Substance: ATORVASTATIN
     Indication: HYPERLIPIDAEMIA
     Dosage: 40 MG, UNK
     Route: 065
  2. EZETIMIBE. [Concomitant]
     Active Substance: EZETIMIBE
     Indication: HYPERLIPIDAEMIA
     Dosage: 10 MG, UNK
     Route: 065
  3. EZETIMIBE, SIMVASTATIN [Suspect]
     Active Substance: EZETIMIBE\SIMVASTATIN
     Indication: HYPERLIPIDAEMIA
     Dosage: SIMVASTATIN 10 MG AND EZETIMIBE 10MG
     Route: 065

REACTIONS (4)
  - Atrophy [Recovering/Resolving]
  - Myopathy [Recovering/Resolving]
  - Muscular weakness [Recovering/Resolving]
  - Myositis [Recovering/Resolving]
